FAERS Safety Report 21395757 (Version 1)
Quarter: 2022Q3

REPORT INFORMATION
  Report Type: Report from Study
  Country: US (occurrence: US)
  Receive Date: 20220930
  Receipt Date: 20220930
  Transmission Date: 20221027
  Serious: Yes (Other)
  Sender: FDA-Public Use
  Company Number: US-SA-2022SA398825

PATIENT

DRUGS (4)
  1. OXALIPLATIN [Suspect]
     Active Substance: OXALIPLATIN
     Indication: Diffuse large B-cell lymphoma
     Dosage: QOW (CYCLE 1-4, UNTIL DISEASE PROGRESSION
  2. GEMCITABINE [Suspect]
     Active Substance: GEMCITABINE
     Indication: Diffuse large B-cell lymphoma
     Dosage: UNK UNK, QOW (CYCLE 1-4, UNTIL DISEASE PROGRESSION)
  3. EPCORITAMAB [Suspect]
     Active Substance: EPCORITAMAB
     Indication: Diffuse large B-cell lymphoma
     Dosage: QW, CYCLE [C] 1?3; Q2W, C4?9; Q4W, C?10)
     Route: 058
  4. CORTICOSTEROID NOS [Concomitant]
     Active Substance: CORTICOSTEROID NOS
     Indication: Prophylaxis

REACTIONS (1)
  - Immune effector cell-associated neurotoxicity syndrome [Unknown]
